FAERS Safety Report 22096958 (Version 1)
Quarter: 2023Q1

REPORT INFORMATION
  Report Type: Spontaneous
  Country: US (occurrence: US)
  Receive Date: 20230315
  Receipt Date: 20230315
  Transmission Date: 20230417
  Serious: Yes (Other)
  Sender: FDA-Public Use
  Company Number: US-PFIZER INC-2020287361

PATIENT
  Sex: Female

DRUGS (2)
  1. BUTORPHANOL TARTRATE [Suspect]
     Active Substance: BUTORPHANOL TARTRATE
     Indication: Migraine
     Dosage: UNK
  2. BUTORPHANOL [Suspect]
     Active Substance: BUTORPHANOL
     Indication: Migraine
     Dosage: 2.5 MG, 4X/DAY
     Dates: start: 2003

REACTIONS (4)
  - Loss of consciousness [Unknown]
  - Vomiting [Unknown]
  - General physical health deterioration [Unknown]
  - Off label use [Unknown]
